FAERS Safety Report 5807895-5 (Version None)
Quarter: 2008Q3

REPORT INFORMATION
  Report Type: 
  Country: None (occurrence: None)
  Receive Date: 20080711
  Receipt Date: 20080630
  Transmission Date: 20090109
  Serious: Yes (Other)
  Sender: FDA-Public Use
  Company Number: US-PFIZER INC-2008018173

PATIENT
  Sex: Female
  Weight: 61.4 kg

DRUGS (3)
  1. XANAX [Suspect]
     Indication: ANXIETY
  2. XANAX XR [Suspect]
  3. ZOLOFT [Concomitant]
     Indication: DEPRESSION

REACTIONS (12)
  - ANXIETY [None]
  - CONVULSION [None]
  - DISTURBANCE IN ATTENTION [None]
  - DIZZINESS [None]
  - EYE PRURITUS [None]
  - HEADACHE [None]
  - HEART RATE INCREASED [None]
  - HYPOAESTHESIA ORAL [None]
  - INTENTIONAL DRUG MISUSE [None]
  - OCULAR HYPERAEMIA [None]
  - SEDATION [None]
  - VISUAL IMPAIRMENT [None]
